FAERS Safety Report 9986220 (Version 2)
Quarter: 2014Q1

REPORT INFORMATION
  Report Type: Report from Study
  Country: US (occurrence: US)
  Receive Date: 20140307
  Receipt Date: 20140307
  Transmission Date: 20141002
  Serious: No
  Sender: FDA-Public Use
  Company Number: US-ABBVIE-13P-163-1032102-00

PATIENT
  Age: 61 Year
  Sex: Female
  Weight: 81.72 kg

DRUGS (5)
  1. HUMIRA [Suspect]
     Indication: PSORIATIC ARTHROPATHY
     Route: 058
     Dates: start: 20121108
  2. PROPYLENE GLYCOL [Concomitant]
     Indication: PRODUCT USED FOR UNKNOWN INDICATION
  3. LISINOPRIL [Concomitant]
     Indication: HYPERTENSION
  4. SERTRALINE [Concomitant]
     Indication: CRYING
  5. PRILOSEC [Concomitant]
     Indication: DYSPEPSIA

REACTIONS (7)
  - Blood glucose increased [Not Recovered/Not Resolved]
  - Blood pressure increased [Unknown]
  - Psoriasis [Not Recovered/Not Resolved]
  - Musculoskeletal pain [Not Recovered/Not Resolved]
  - Arthralgia [Not Recovered/Not Resolved]
  - Drug dose omission [Not Recovered/Not Resolved]
  - Insomnia [Not Recovered/Not Resolved]
